FAERS Safety Report 4863585-7 (Version None)
Quarter: 2005Q4

REPORT INFORMATION
  Report Type: 
  Country: None (occurrence: None)
  Receive Date: 20051222
  Receipt Date: 20050523
  Transmission Date: 20060501
  Serious: No
  Sender: FDA-Public Use
  Company Number: US-GLAXOSMITHKLINE-A0559743A

PATIENT
  Age: 71 Year
  Sex: Male

DRUGS (3)
  1. FLOVENT [Suspect]
     Indication: ASTHMA
     Dosage: 2PUFF TWICE PER DAY
     Route: 055
     Dates: start: 20050507, end: 20050518
  2. CRESTOR [Concomitant]
  3. TERAZOSIN [Concomitant]

REACTIONS (4)
  - CHEST DISCOMFORT [None]
  - DRUG INEFFECTIVE [None]
  - DYSPNOEA [None]
  - PHARMACEUTICAL PRODUCT COMPLAINT [None]
